FAERS Safety Report 4955160-0 (Version None)
Quarter: 2006Q1

REPORT INFORMATION
  Report Type: 
  Country: None (occurrence: None)
  Receive Date: 20060322
  Receipt Date: 20060313
  Transmission Date: 20060701
  Serious: Yes (Other)
  Sender: FDA-Public Use
  Company Number: 2006036593

PATIENT
  Sex: Female
  Weight: 78.0187 kg

DRUGS (14)
  1. ANTIVERT [Suspect]
     Indication: ILL-DEFINED DISORDER
     Dates: start: 19690101
  2. CELEBREX [Suspect]
     Indication: ARTHRITIS
  3. ZOLOFT [Suspect]
     Indication: ANXIETY
  4. NEURONTIN [Suspect]
     Indication: ANXIETY
  5. HYDROXYZINE HCL [Suspect]
     Indication: ANXIETY
  6. INDOCIN [Suspect]
     Indication: ARTHRITIS
  7. PROTONIX [Concomitant]
  8. CARAFATE [Concomitant]
  9. LOTREL [Concomitant]
  10. HYZAAR [Concomitant]
  11. KEPPRA [Concomitant]
  12. HYOSCYAMINE (HYOSCYAMINE) [Concomitant]
  13. LEVBID (HYOSCYAMINE SULFATE) [Concomitant]
  14. PRAVACHOL [Concomitant]

REACTIONS (7)
  - ANXIETY [None]
  - ARTHRITIS [None]
  - BLOOD CHOLESTEROL INCREASED [None]
  - GASTROOESOPHAGEAL REFLUX DISEASE [None]
  - HYPERTENSION [None]
  - IRRITABLE BOWEL SYNDROME [None]
  - ULCER [None]
